FAERS Safety Report 5207332-8 (Version None)
Quarter: 2007Q1

REPORT INFORMATION
  Report Type: 
  Country: None (occurrence: None)
  Receive Date: 20070110
  Receipt Date: 20061228
  Transmission Date: 20070707
  Serious: Yes (Hospitalization)
  Sender: FDA-Public Use
  Company Number: 2005EU002680

PATIENT
  Age: 61 Year
  Sex: Male

DRUGS (8)
  1. FK506 (TACROLIMUS CAPSULES)CAPSULE [Suspect]
     Indication: LIVER TRANSPLANT
     Dosage: 2MG, UNKNOWN/D; ORAL
     Route: 048
     Dates: start: 20050703, end: 20060623
  2. MYCOPHENOLATE MOFETIL [Suspect]
     Indication: LIVER TRANSPLANT
     Dosage: 1000 MG, UID/QD, IV NOS
     Route: 042
     Dates: start: 20050628, end: 20050703
  3. MYCOPHENOLATE MOFETIL [Suspect]
     Indication: LIVER TRANSPLANT
     Dosage: 1000 MG, BID; ORAL
     Route: 048
     Dates: start: 20050704, end: 20060623
  4. DACLIZUMAB (DACLIZUMAB) [Suspect]
     Indication: LIVER TRANSPLANT
     Dosage: 125 MG, UID/QD, IV NOS
     Route: 042
     Dates: start: 20050628, end: 20050705
  5. METHYLPREDNISONONE (METHYLPREDNISOLONE) [Suspect]
     Indication: LIVER TRANSPLANT
     Dosage: 4 MG, UID/QD, UNKNOWN
     Dates: start: 20050628, end: 20050921
  6. LORMETAZEPAM [Concomitant]
  7. AMPICILLIN [Concomitant]
  8. METOPROLOL TARTRATE [Concomitant]

REACTIONS (5)
  - BACK PAIN [None]
  - INFECTIVE SPONDYLITIS [None]
  - INTERVERTEBRAL DISC DISORDER [None]
  - OSTEOARTHRITIS [None]
  - OSTEOPENIA [None]
